FAERS Safety Report 7090272-X (Version None)
Quarter: 2010Q4

REPORT INFORMATION
  Report Type: 
  Country: None (occurrence: None)
  Receive Date: 20101105
  Receipt Date: 20101105
  Transmission Date: 20110411
  Serious: Yes (Other)
  Sender: FDA-Public Use
  Company Number: None

PATIENT
  Age: 8 Year
  Sex: Male
  Weight: 21.7727 kg

DRUGS (1)
  1. FLUTICASONE PROPIONATE [Suspect]
     Indication: HYPERSENSITIVITY
     Dosage: 2 SPRAYS, EACH NOSTRIL DAILY NASAL
     Route: 045
     Dates: start: 20101102, end: 20101103

REACTIONS (3)
  - HEADACHE [None]
  - PAIN [None]
  - PRODUCT LABEL ISSUE [None]
